FAERS Safety Report 7756677-6 (Version None)
Quarter: 2011Q3

REPORT INFORMATION
  Report Type: 
  Country: None (occurrence: None)
  Receive Date: 20110916
  Receipt Date: 20110914
  Transmission Date: 20111222
  Serious: Yes (Other)
  Sender: FDA-Public Use
  Company Number: JP-PFIZER INC-2011209866

PATIENT
  Age: 46 Year
  Sex: Male

DRUGS (4)
  1. SOLU-MEDROL [Suspect]
     Indication: MULTIPLE SCLEROSIS
     Dosage: UNK MG, ALTERNATE DAY
     Dates: start: 20110720, end: 20110727
  2. LANSOPRAZOLE [Concomitant]
  3. BEZATOL [Concomitant]
  4. FAMOTIDINE [Concomitant]
     Dosage: UNK
     Dates: end: 20110701

REACTIONS (1)
  - LIVER DISORDER [None]
